FAERS Safety Report 4513336-0 (Version None)
Quarter: 2004Q4

REPORT INFORMATION
  Report Type: 
  Country: None (occurrence: None)
  Receive Date: 20041130
  Receipt Date: 20040812
  Transmission Date: 20050328
  Serious: No
  Sender: FDA-Public Use
  Company Number: US-BRISTOL-MYERS SQUIBB COMPANY-12669669

PATIENT
  Age: 65 Year
  Sex: Female

DRUGS (2)
  1. ERBITUX [Suspect]
     Indication: COLON CANCER
     Route: 042
     Dates: start: 20040812, end: 20040812
  2. BENADRYL [Concomitant]
     Indication: PREMEDICATION

REACTIONS (2)
  - ERYTHEMA [None]
  - EXTRAVASATION [None]
